FAERS Safety Report 18188733 (Version 1)
Quarter: 2020Q3

REPORT INFORMATION
  Report Type: Spontaneous
  Country: JP (occurrence: JP)
  Receive Date: 20200824
  Receipt Date: 20200824
  Transmission Date: 20201103
  Serious: Yes (Other)
  Sender: FDA-Public Use
  Company Number: JP-VIIV HEALTHCARE LIMITED-JP2020JPN164900

PATIENT
  Age: 27 Year
  Sex: Female

DRUGS (1)
  1. AZT [Suspect]
     Active Substance: ZIDOVUDINE
     Dosage: UNK
     Route: 042

REACTIONS (5)
  - Product use in unapproved indication [Unknown]
  - Penicillium infection [Unknown]
  - Exposure during pregnancy [Unknown]
  - Product use issue [Unknown]
  - Live birth [Unknown]
